FAERS Safety Report 19317500 (Version 1)
Quarter: 2021Q2

REPORT INFORMATION
  Report Type: Report from Study
  Country: KR (occurrence: KR)
  Receive Date: 20210527
  Receipt Date: 20210527
  Transmission Date: 20210717
  Serious: Yes (Death, Other)
  Sender: FDA-Public Use
  Company Number: KR-GILEAD-E2B_00000107

PATIENT
  Age: 68 Year
  Sex: Male

DRUGS (3)
  1. LAMIVUDINE (HBV) [Suspect]
     Active Substance: LAMIVUDINE
     Indication: PRODUCT USED FOR UNKNOWN INDICATION
     Dosage: UNK
     Route: 048
     Dates: start: 20070128, end: 20070503
  2. ADEFOVIR DIPIVOXIL. [Suspect]
     Active Substance: ADEFOVIR DIPIVOXIL
     Indication: HEPATITIS B
     Dosage: UNK
     Route: 048
     Dates: start: 20070128, end: 20070503
  3. ZEFFIX [Concomitant]
     Active Substance: LAMIVUDINE
     Dosage: 100 MG
     Route: 048
     Dates: start: 20070128, end: 20070503

REACTIONS (1)
  - Hepatocellular carcinoma [Fatal]

NARRATIVE: CASE EVENT DATE: 20070503
